FAERS Safety Report 15854973 (Version 2)
Quarter: 2019Q2

REPORT INFORMATION
  Report Type: Other
  Country: JP (occurrence: JP)
  Receive Date: 20190122
  Receipt Date: 20190408
  Transmission Date: 20190711
  Serious: Yes (Hospitalization, Other)
  Sender: FDA-Public Use
  Company Number: JP-PURDUE PHARMA-GBR-2018-0063467

PATIENT
  Age: 94 Year
  Sex: Male

DRUGS (8)
  1. UNIPHYL [Suspect]
     Active Substance: THEOPHYLLINE ANHYDROUS
     Indication: ASTHMA
     Dosage: 200 MG, DAILY
     Route: 048
     Dates: end: 20170609
  2. MICARDIS [Concomitant]
     Active Substance: TELMISARTAN
     Dosage: 10 MG, DAILY
     Dates: end: 20170516
  3. SPIRONOLACTONE. [Concomitant]
     Active Substance: SPIRONOLACTONE
     Dosage: 42.5 MG, DAILY
  4. TRICHLORMETHIAZIDE [Concomitant]
     Active Substance: TRICHLORMETHIAZIDE
     Dosage: 1 MG, DAILY
     Dates: end: 20170606
  5. RABEPRAZOLE SODIUM. [Concomitant]
     Active Substance: RABEPRAZOLE SODIUM
     Dosage: 10 MG, DAILY
  6. FEBUXOSTAT. [Concomitant]
     Active Substance: FEBUXOSTAT
     Dosage: 20 MG, DAILY
  7. FUROSEMIDE. [Concomitant]
     Active Substance: FUROSEMIDE
     Dosage: 40 MG, DAILY
     Dates: end: 20170624
  8. VASOLAN                            /00014302/ [Concomitant]
     Active Substance: VERAPAMIL HYDROCHLORIDE
     Dosage: 60 MG, TID

REACTIONS (7)
  - Decreased activity [Recovered/Resolved]
  - Abdominal discomfort [Recovered/Resolved]
  - Hypokalaemia [Unknown]
  - Dehydration [Recovered/Resolved]
  - Cerebellar infarction [Recovered/Resolved]
  - Decreased appetite [Recovered/Resolved]
  - Drug level increased [Recovered/Resolved]

NARRATIVE: CASE EVENT DATE: 201705
